FAERS Safety Report 8615512-4 (Version None)
Quarter: 2012Q3

REPORT INFORMATION
  Report Type: 
  Country: None (occurrence: None)
  Receive Date: 20120823
  Receipt Date: 20120814
  Transmission Date: 20120928
  Serious: Yes (Other)
  Sender: FDA-Public Use
  Company Number: FR-JNJFOC-20120811014

PATIENT

DRUGS (5)
  1. PREZISTA [Suspect]
     Indication: HIV INFECTION
     Route: 048
  2. PREZISTA [Suspect]
     Route: 048
  3. RITONAVIR [Suspect]
     Indication: HIV INFECTION
     Route: 065
  4. NUCLEOSIDE REVERSE TRANSCRIPTASE INHIBITORS [Suspect]
     Indication: HIV INFECTION
     Route: 065
  5. RITONAVIR [Suspect]
     Route: 065

REACTIONS (4)
  - BLOOD GLUCOSE INCREASED [None]
  - OSTEOPENIA [None]
  - BODY FAT DISORDER [None]
  - OSTEOPOROSIS [None]
